FAERS Safety Report 24017439 (Version 2)
Quarter: 2024Q3

REPORT INFORMATION
  Report Type: Report from Study
  Country: DK (occurrence: DK)
  Receive Date: 20240627
  Receipt Date: 20240718
  Transmission Date: 20241017
  Serious: Yes (Hospitalization)
  Sender: ROCHE
  Company Number: DK-ROCHE-10000002708

PATIENT
  Age: 43 Year
  Sex: Female

DRUGS (4)
  1. ALECTINIB [Suspect]
     Active Substance: ALECTINIB
     Indication: Non-small cell lung cancer
     Dosage: DATE OF LAST DOSE OF STUDY DRUG(S) 02/JUN/2024
     Route: 048
     Dates: start: 20231024
  2. ALECTINIB [Suspect]
     Active Substance: ALECTINIB
     Route: 048
  3. CRIZOTINIB [Concomitant]
     Active Substance: CRIZOTINIB
  4. PEMETREXED [Concomitant]
     Active Substance: PEMETREXED

REACTIONS (2)
  - Febrile neutropenia [Recovered/Resolved]
  - Back pain [Not Recovered/Not Resolved]

NARRATIVE: CASE EVENT DATE: 20240602
